FAERS Safety Report 7981767-2 (Version None)
Quarter: 2011Q4

REPORT INFORMATION
  Report Type: 
  Country: None (occurrence: None)
  Receive Date: 20111215
  Receipt Date: 20111201
  Transmission Date: 20120403
  Serious: Yes (Congenital Anomaly)
  Sender: FDA-Public Use
  Company Number: GB-JNJFOC-20111205408

PATIENT

DRUGS (7)
  1. ALCOHOL [Suspect]
     Indication: FOETAL EXPOSURE DURING PREGNANCY
     Route: 064
  2. METHYLPHENIDATE HCL [Suspect]
     Indication: FOETAL EXPOSURE DURING PREGNANCY
     Route: 064
  3. NICOTINE [Suspect]
     Indication: FOETAL EXPOSURE DURING PREGNANCY
     Route: 064
  4. COCAINE [Suspect]
     Indication: FOETAL EXPOSURE DURING PREGNANCY
     Route: 064
  5. NICOTINE [Suspect]
     Route: 064
  6. PENTAZOCINE LACTATE [Suspect]
     Indication: FOETAL EXPOSURE DURING PREGNANCY
     Route: 064
  7. PHENYTOIN [Suspect]
     Indication: FOETAL EXPOSURE DURING PREGNANCY
     Route: 064

REACTIONS (1)
  - LIMB MALFORMATION [None]
